FAERS Safety Report 13190524 (Version 1)
Quarter: 2017Q1

REPORT INFORMATION
  Report Type: Spontaneous
  Country: US (occurrence: US)
  Receive Date: 20170206
  Receipt Date: 20170206
  Transmission Date: 20170428
  Serious: Yes (Hospitalization, Other)
  Sender: FDA-Public Use
  Company Number: US-SAOL THERAPEUTICS-2017SAO00236

PATIENT
  Age: 63 Year
  Sex: Female

DRUGS (2)
  1. BACLOFEN. [Suspect]
     Active Substance: BACLOFEN
     Dosage: 1056.1 ?G, \DAY
     Route: 037
  2. METHADONE [Concomitant]
     Active Substance: METHADONE HYDROCHLORIDE

REACTIONS (6)
  - Sedation [Unknown]
  - Fall [Unknown]
  - Lethargy [Unknown]
  - Device failure [Recovered/Resolved]
  - Muscle twitching [Unknown]
  - Confusional state [Unknown]

NARRATIVE: CASE EVENT DATE: 20161205
